FAERS Safety Report 9097231 (Version 3)
Quarter: 2013Q2

REPORT INFORMATION
  Report Type: Spontaneous
  Country: US (occurrence: US)
  Receive Date: 20130212
  Receipt Date: 20130423
  Transmission Date: 20140414
  Serious: Yes (Other)
  Sender: FDA-Public Use
  Company Number: US-JNJFOC-20130202234

PATIENT
  Sex: Female
  Weight: 56.7 kg

DRUGS (4)
  1. STELARA [Suspect]
     Indication: PSORIASIS
     Dosage: DOSE: 45 MG/0.5 ML
     Route: 058
     Dates: start: 201102, end: 201212
  2. CLOBETASOL [Concomitant]
     Indication: PSORIASIS
     Dosage: ONCE OR TWICE A DAY
     Route: 061
  3. PROTOPIC [Concomitant]
     Indication: PSORIASIS
     Dosage: ONCE OR TWICE A DAY TOPICALLY AS NEEDED, STRENGTH-0.1%
     Route: 061
  4. ACNE MEDICATION [Concomitant]
     Indication: ACNE
     Route: 065

REACTIONS (4)
  - Cervical dysplasia [Recovering/Resolving]
  - Antinuclear antibody positive [Recovering/Resolving]
  - Urticaria [Recovering/Resolving]
  - Arthralgia [Unknown]
